FAERS Safety Report 20574606 (Version 1)
Quarter: 2022Q1

REPORT INFORMATION
  Report Type: Report from Study
  Country: US (occurrence: None)
  Receive Date: 20220309
  Receipt Date: 20220309
  Transmission Date: 20220423
  Serious: Yes (Other)
  Sender: FDA-Public Use
  Company Number: 2022A097421

PATIENT
  Sex: Male
  Weight: 75.3 kg

DRUGS (17)
  1. CALQUENCE [Suspect]
     Active Substance: ACALABRUTINIB
     Indication: Chronic lymphocytic leukaemia
     Route: 048
  2. ISOSORBIDE [Concomitant]
     Active Substance: ISOSORBIDE
  3. FLUTICASONE [Concomitant]
     Active Substance: FLUTICASONE
     Route: 045
  4. VITAMIN D3 [Concomitant]
     Active Substance: CHOLECALCIFEROL
  5. VITAMIN B12 [Concomitant]
     Active Substance: CYANOCOBALAMIN
  6. DRAMINE [Concomitant]
  7. VITAMINS [Concomitant]
     Active Substance: VITAMINS
  8. ELIQUIS [Concomitant]
     Active Substance: APIXABAN
  9. FOLIC ACID [Concomitant]
     Active Substance: FOLIC ACID
  10. GABAPENTIN [Concomitant]
     Active Substance: GABAPENTIN
  11. HYDROCODONE IBUPROFEN [Concomitant]
  12. LOPERAMIDE HYDROCHLORIDE [Concomitant]
     Active Substance: LOPERAMIDE HYDROCHLORIDE
  13. METOPROLOL TARTRATE [Concomitant]
     Active Substance: METOPROLOL TARTRATE
  14. OLMESARTAN MEDOXOMILHCTZ [Concomitant]
  15. OMEGA-3 ACID [Concomitant]
  16. PRAVASTATIN SODIUM [Concomitant]
     Active Substance: PRAVASTATIN SODIUM
  17. ZOFRAN [Concomitant]
     Active Substance: ONDANSETRON HYDROCHLORIDE

REACTIONS (1)
  - Laboratory test abnormal [Recovering/Resolving]
